FAERS Safety Report 4394185-3 (Version None)
Quarter: 2004Q3

REPORT INFORMATION
  Report Type: 
  Country: None (occurrence: None)
  Receive Date: 20040706
  Receipt Date: 20040623
  Transmission Date: 20050211
  Serious: Yes (Other)
  Sender: FDA-Public Use
  Company Number: AMAN20040008

PATIENT
  Sex: Female

DRUGS (3)
  1. AMANTADINE HCL [Suspect]
     Dosage: 200 MG DAILY PO
     Route: 048
     Dates: start: 20040101, end: 20040301
  2. PEG-INTRON [Suspect]
     Dosage: 150 MCG WEEKLY SC
     Route: 058
     Dates: start: 20040101, end: 20040301
  3. REBETOL [Suspect]
     Dosage: 1200 MG DAILY PO
     Route: 048
     Dates: start: 20040101, end: 20040301

REACTIONS (3)
  - DEPRESSION [None]
  - MULTIPLE MYELOMA [None]
  - RIB FRACTURE [None]
